FAERS Safety Report 5128114-1 (Version None)
Quarter: 2006Q4

REPORT INFORMATION
  Report Type: 
  Country: None (occurrence: None)
  Receive Date: 20061011
  Receipt Date: 20060926
  Transmission Date: 20070319
  Serious: Yes (Hospitalization)
  Sender: FDA-Public Use
  Company Number: 2006P1000446

PATIENT
  Age: 24 Month
  Sex: Male

DRUGS (5)
  1. NICARDIPINE HYDROCHLORIDE [Suspect]
     Indication: HYPERTENSION
     Dosage: 2 MG/KG;1X;IV
     Route: 042
     Dates: start: 20060712, end: 20060714
  2. VINCRISTINE [Suspect]
     Indication: NEPHROBLASTOMA
     Dosage: 0.8 MG;1X;IV
     Route: 042
     Dates: start: 20060714, end: 20060714
  3. DACTINOMYCIN [Suspect]
     Indication: NEPHROBLASTOMA
     Dosage: 1X; IV
     Route: 042
     Dates: start: 20060714, end: 20060714
  4. LABETALOL HCL [Suspect]
     Indication: HYPERTENSION
     Dosage: 1 MG;X1;IV
     Route: 042
     Dates: start: 20060714, end: 20060714
  5. ONDANSETRON [Suspect]
     Indication: NEPHROBLASTOMA
     Dosage: 4 MG;1X;IV
     Route: 042
     Dates: start: 20060714, end: 20060714

REACTIONS (3)
  - APPLICATION SITE OEDEMA [None]
  - ERYTHEMA [None]
  - OEDEMA PERIPHERAL [None]
